FAERS Safety Report 5134829-1 (Version None)
Quarter: 2006Q4

REPORT INFORMATION
  Report Type: 
  Country: None (occurrence: None)
  Receive Date: 20061025
  Receipt Date: 20061019
  Transmission Date: 20070319
  Serious: Yes (Death, Hospitalization)
  Sender: FDA-Public Use
  Company Number: GB-JNJFOC-20060705873

PATIENT
  Sex: Male

DRUGS (2)
  1. ACETAMINOPHEN [Suspect]
     Route: 048
  2. ACETAMINOPHEN [Suspect]
     Indication: PYREXIA
     Dosage: ^STAGGERED DOSES,^ ORAL
     Route: 048

REACTIONS (4)
  - FUNGAL SEPSIS [None]
  - HEPATOTOXICITY [None]
  - LIVER TRANSPLANT [None]
  - OVERDOSE [None]
